FAERS Safety Report 16956068 (Version 1)
Quarter: 2019Q4

REPORT INFORMATION
  Report Type: Spontaneous
  Country: GB (occurrence: GB)
  Receive Date: 20191024
  Receipt Date: 20191024
  Transmission Date: 20200122
  Serious: Yes (Hospitalization)
  Sender: FDA-Public Use
  Company Number: GB-TEVA-2019-GB-1126481

PATIENT
  Age: 3 Year
  Sex: Male
  Weight: 15.5 kg

DRUGS (23)
  1. RITUXIMAB. [Suspect]
     Active Substance: RITUXIMAB
     Indication: BURKITT^S LYMPHOMA
     Dosage: 375 MG/M2
     Route: 042
     Dates: start: 20190607, end: 20190822
  2. METHOTREXATE. [Concomitant]
     Active Substance: METHOTREXATE
     Route: 065
  3. RANITIDINE. [Concomitant]
     Active Substance: RANITIDINE
  4. CEFTAZIDIME. [Concomitant]
     Active Substance: CEFTAZIDIME
  5. CYCLIZINE [Concomitant]
     Active Substance: CYCLIZINE
  6. CHLORPHENAMINE [Concomitant]
     Active Substance: CHLORPHENIRAMINE MALEATE
  7. MORPHINE [Concomitant]
     Active Substance: MORPHINE
  8. DOCUSATE [Concomitant]
     Active Substance: DOCUSATE
  9. VINCRISTINE [Suspect]
     Active Substance: VINCRISTINE
     Route: 065
  10. CYCLOPHOSPHAMIDE. [Suspect]
     Active Substance: CYCLOPHOSPHAMIDE
     Route: 065
  11. PIPERACILLIN AND TAZOBACTAM [Concomitant]
     Active Substance: PIPERACILLIN SODIUM\TAZOBACTAM SODIUM
     Route: 065
  12. FUROSEMIDE. [Concomitant]
     Active Substance: FUROSEMIDE
  13. ONDANSETRON [Concomitant]
     Active Substance: ONDANSETRON
  14. ACICLOVIR [Concomitant]
     Active Substance: ACYCLOVIR
     Route: 065
  15. DOXORUBICIN [Suspect]
     Active Substance: DOXORUBICIN
     Route: 065
  16. TRAMADOL. [Concomitant]
     Active Substance: TRAMADOL
  17. CALCIUM FOLINATE [Concomitant]
     Active Substance: LEUCOVORIN CALCIUM
     Route: 065
  18. PARACETAMOL [Concomitant]
     Active Substance: ACETAMINOPHEN
  19. RANITIDINE. [Concomitant]
     Active Substance: RANITIDINE
  20. AMIKACIN. [Concomitant]
     Active Substance: AMIKACIN
     Route: 065
  21. PREDNISOLONE. [Suspect]
     Active Substance: PREDNISOLONE
     Route: 065
  22. CYTARABINE. [Concomitant]
     Active Substance: CYTARABINE
  23. HYDROCORTISONE. [Concomitant]
     Active Substance: HYDROCORTISONE

REACTIONS (4)
  - Respiratory distress [Unknown]
  - Pneumocystis jirovecii pneumonia [Recovering/Resolving]
  - Cytopenia [Unknown]
  - Febrile neutropenia [Unknown]

NARRATIVE: CASE EVENT DATE: 20190911
